FAERS Safety Report 7297701-7 (Version None)
Quarter: 2011Q1

REPORT INFORMATION
  Report Type: 
  Country: None (occurrence: None)
  Receive Date: 20110216
  Receipt Date: 20110204
  Transmission Date: 20110831
  Serious: Yes (Other)
  Sender: FDA-Public Use
  Company Number: US-ELI_LILLY_AND_COMPANY-US200908004184

PATIENT
  Sex: Female

DRUGS (4)
  1. FORTEO [Suspect]
     Indication: OSTEOPOROSIS
     Dosage: 20 UG, DAILY (1/D)
     Route: 065
     Dates: start: 20090728
  2. FORTEO [Suspect]
     Dosage: 20 UG, DAILY (1/D)
     Route: 065
  3. EYE DROPS [Concomitant]
     Dosage: 11 D/F, DAILY (1/D)
     Route: 047
  4. FORTEO [Suspect]
     Dosage: 20 UG, DAILY (1/D)
     Route: 065

REACTIONS (10)
  - FALL [None]
  - ARTHRALGIA [None]
  - MACULAR OEDEMA [None]
  - VISUAL ACUITY REDUCED [None]
  - ABDOMINAL DISCOMFORT [None]
  - DRY EYE [None]
  - NAUSEA [None]
  - HEADACHE [None]
  - RETINITIS [None]
  - INJECTION SITE DISCOLOURATION [None]
